FAERS Safety Report 8216712 (Version 2)
Quarter: 2013Q2

REPORT INFORMATION
  Report Type: Spontaneous
  Country: US (occurrence: US)
  Receive Date: 20111031
  Receipt Date: 20130513
  Transmission Date: 20140414
  Serious: Yes (Hospitalization, Other)
  Sender: FDA-Public Use
  Company Number: US-RB-033369-11

PATIENT
  Age: 53 Year
  Sex: Female

DRUGS (2)
  1. SUBOXONE FILM [Suspect]
     Indication: DRUG DEPENDENCE
     Dosage: 4-6 MG/DAILY
     Route: 060
     Dates: start: 201010, end: 2011
  2. SUBOXONE TABLET [Suspect]
     Indication: DRUG DEPENDENCE
     Dosage: 4-6 MG/DAILY
     Route: 060
     Dates: start: 2008, end: 201010

REACTIONS (1)
  - Tongue cancer recurrent [Not Recovered/Not Resolved]
